FAERS Safety Report 24563134 (Version 1)
Quarter: 2024Q4

REPORT INFORMATION
  Report Type: Spontaneous
  Country: US (occurrence: US)
  Receive Date: 20241030
  Receipt Date: 20241030
  Transmission Date: 20250114
  Serious: Yes (Other)
  Sender: SANDOZ
  Company Number: US-SANDOZ-SDZ2024US090161

PATIENT
  Sex: Female

DRUGS (1)
  1. AZOPT [Suspect]
     Active Substance: BRINZOLAMIDE
     Indication: Product used for unknown indication
     Dosage: UNK
     Route: 065

REACTIONS (8)
  - Disability [Unknown]
  - Aortic valve replacement [Unknown]
  - Glaucoma [Unknown]
  - Macular degeneration [Unknown]
  - Blindness unilateral [Unknown]
  - Swelling [Unknown]
  - Visual impairment [Unknown]
  - Inflammation [Unknown]
